FAERS Safety Report 15637933 (Version 6)
Quarter: 2019Q3

REPORT INFORMATION
  Report Type: Spontaneous
  Country: US (occurrence: US)
  Receive Date: 20181120
  Receipt Date: 20190809
  Transmission Date: 20191004
  Serious: No
  Sender: FDA-Public Use
  Company Number: US-JNJFOC-20180710960

PATIENT
  Age: 65 Year
  Sex: Female
  Weight: 123 kg

DRUGS (20)
  1. IMBRUVICA [Suspect]
     Active Substance: IBRUTINIB
     Indication: CHRONIC LYMPHOCYTIC LEUKAEMIA
     Route: 048
     Dates: start: 20180529
  2. FLONASE [Concomitant]
     Active Substance: FLUTICASONE PROPIONATE
     Route: 045
  3. DESONIDE. [Concomitant]
     Active Substance: DESONIDE
  4. NORVASC [Concomitant]
     Active Substance: AMLODIPINE BESYLATE
  5. CLARITIN [Concomitant]
     Active Substance: LORATADINE
     Route: 048
  6. ZITHROMAX [Concomitant]
     Active Substance: AZITHROMYCIN DIHYDRATE
     Dosage: 250 MG, 4 TIMES DAILY
  7. ALLEGRA [Concomitant]
     Active Substance: FEXOFENADINE HYDROCHLORIDE
  8. IMBRUVICA [Suspect]
     Active Substance: IBRUTINIB
     Dosage: 420 MG, QD
     Route: 048
     Dates: start: 201904
  9. VITAMIN D [Concomitant]
     Active Substance: VITAMIN D NOS
     Dosage: 5000 DAILY
     Route: 048
  10. IMBRUVICA [Suspect]
     Active Substance: IBRUTINIB
     Indication: LYMPHOID LEUKAEMIA (IN REMISSION)
     Dosage: 420 MG, QD
     Route: 048
     Dates: start: 20180426
  11. VITAMIN D [Concomitant]
     Active Substance: VITAMIN D NOS
     Dosage: 1000 UNIT, QD
     Route: 048
  12. IMBRUVICA [Suspect]
     Active Substance: IBRUTINIB
     Indication: CHRONIC LYMPHOCYTIC LEUKAEMIA
     Route: 048
  13. IMBRUVICA [Suspect]
     Active Substance: IBRUTINIB
     Route: 048
     Dates: start: 20190506
  14. MULTIVITAMINS [Concomitant]
     Active Substance: VITAMINS
     Route: 048
  15. CHONDROITIN SULFATE W/GLUCOSAMINE [Concomitant]
     Dosage: 500-600 MG
     Route: 048
  16. ZITHROMAX [Concomitant]
     Active Substance: AZITHROMYCIN DIHYDRATE
     Route: 048
  17. CALCIUM MAGNESIUM CARBONATE. [Concomitant]
     Active Substance: CALCIUM MAGNESIUM CARBONATE
  18. IMBRUVICA [Suspect]
     Active Substance: IBRUTINIB
     Dosage: 140 MG, UNK
     Route: 048
  19. FLAGYL [Concomitant]
     Active Substance: METRONIDAZOLE\METRONIDAZOLE HYDROCHLORIDE
     Dosage: 500 MG, EVERY 8 HOURS
  20. BIOTIN [Concomitant]
     Active Substance: BIOTIN

REACTIONS (12)
  - Alopecia [Not Recovered/Not Resolved]
  - Iron deficiency [Unknown]
  - Onychoclasis [Recovering/Resolving]
  - Arthralgia [Recovered/Resolved]
  - Off label use [Unknown]
  - Epistaxis [Recovered/Resolved]
  - Hypertension [Recovering/Resolving]
  - Pruritus [Recovering/Resolving]
  - Dry skin [Recovering/Resolving]
  - Erythema [Recovering/Resolving]
  - Incorrect dose administered [Unknown]
  - Infection [Unknown]

NARRATIVE: CASE EVENT DATE: 2018
